FAERS Safety Report 14169032 (Version 1)
Quarter: 2017Q4

REPORT INFORMATION
  Report Type: Spontaneous
  Country: TR (occurrence: TR)
  Receive Date: 20171107
  Receipt Date: 20171107
  Transmission Date: 20180321
  Serious: Yes (Hospitalization, Other)
  Sender: FDA-Public Use
  Company Number: TR-MYLANLABS-2017M1069258

PATIENT
  Age: 37 Year
  Sex: Male

DRUGS (11)
  1. VANCOMYCIN [Suspect]
     Active Substance: VANCOMYCIN
     Indication: POSTOPERATIVE WOUND INFECTION
     Route: 065
  2. TEICOPLANIN [Suspect]
     Active Substance: TEICOPLANIN
     Indication: POSTOPERATIVE WOUND INFECTION
     Dosage: 1 X 800MG
     Route: 042
  3. FUSIDIC ACID [Suspect]
     Active Substance: FUSIDIC ACID
     Indication: POSTOPERATIVE WOUND INFECTION
     Dosage: 3 X 500MG
     Route: 048
  4. SULPHAMETHOXAZOLE/TRIMETHOPRIM [Suspect]
     Active Substance: SULFAMETHOXAZOLE\TRIMETHOPRIM
     Indication: POSTOPERATIVE WOUND INFECTION
     Dosage: 2 X 60/800MG
     Route: 065
  5. TIGECYCLINE. [Suspect]
     Active Substance: TIGECYCLINE
     Indication: POSTOPERATIVE WOUND INFECTION
     Dosage: 1 X 100MG (STARTING DOSE)
     Route: 065
  6. TIGECYCLINE. [Suspect]
     Active Substance: TIGECYCLINE
     Dosage: 2 X 50MG (FIRST TWO WEEKS)
     Route: 065
  7. DAPTOMYCIN. [Suspect]
     Active Substance: DAPTOMYCIN
     Indication: POSTOPERATIVE WOUND INFECTION
     Dosage: 1.4 MG/KG
     Route: 065
  8. RIFAMPICIN [Suspect]
     Active Substance: RIFAMPIN
     Indication: POSTOPERATIVE WOUND INFECTION
     Dosage: 1 X 600MG
     Route: 048
  9. DAPTOMYCIN. [Suspect]
     Active Substance: DAPTOMYCIN
     Dosage: 1 X 6 MG/KG
     Route: 065
  10. LINEZOLID. [Suspect]
     Active Substance: LINEZOLID
     Indication: POSTOPERATIVE WOUND INFECTION
     Dosage: 2 X 600MG
     Route: 065
  11. CLINDAMYCIN. [Suspect]
     Active Substance: CLINDAMYCIN
     Indication: POSTOPERATIVE WOUND INFECTION
     Dosage: 4 X 300MG
     Route: 048

REACTIONS (1)
  - Staphylococcal infection [Unknown]
